FAERS Safety Report 8244227-X (Version None)
Quarter: 2012Q1

REPORT INFORMATION
  Report Type: 
  Country: None (occurrence: None)
  Receive Date: 20120329
  Receipt Date: 20120322
  Transmission Date: 20120608
  Serious: Yes (Other)
  Sender: FDA-Public Use
  Company Number: US-TEVA-318933USA

PATIENT
  Sex: Male
  Weight: 106.69 kg

DRUGS (8)
  1. LEVOTHYROXINE SODIUM [Concomitant]
     Route: 048
  2. GALENIC /BENAZEPRIL/HYDROCHLOROTHIAZIDE/ [Concomitant]
     Route: 048
  3. NUVIGIL [Suspect]
     Indication: SLEEP APNOEA SYNDROME
     Dosage: QAM
     Route: 048
     Dates: start: 20100101, end: 20120119
  4. WARFARIN SODIUM [Concomitant]
     Indication: VENOUS INSUFFICIENCY
     Dosage: 7.5 MG FOR 2 DAYS THEN 5 MG FOR 1 DAY
     Route: 048
  5. OMEPRAZOLE [Concomitant]
     Route: 048
  6. ROSUVASTATIN CALCIUM [Concomitant]
     Route: 048
     Dates: end: 20111230
  7. VENLAFAXINE HCL [Concomitant]
     Indication: DEPRESSION
     Dosage: 150 MILLIGRAM;
     Route: 048
     Dates: start: 19920101
  8. CLONAZEPAM [Concomitant]
     Indication: PANIC DISORDER
     Route: 048

REACTIONS (3)
  - HEPATIC CIRRHOSIS [None]
  - SKIN ULCER [None]
  - ABDOMINAL PAIN UPPER [None]
